FAERS Safety Report 16435826 (Version 1)
Quarter: 2019Q2

REPORT INFORMATION
  Report Type: Spontaneous
  Country: US (occurrence: US)
  Receive Date: 20190614
  Receipt Date: 20190614
  Transmission Date: 20190711
  Serious: No
  Sender: FDA-Public Use
  Company Number: US-MYLANLABS-2019M1051607

PATIENT
  Sex: Female
  Weight: 59 kg

DRUGS (1)
  1. EMSAM [Suspect]
     Active Substance: SELEGILINE
     Indication: DEPRESSION
     Dosage: 6 MILLIGRAM, QD
     Route: 062
     Dates: end: 20190523

REACTIONS (3)
  - Application site rash [Recovering/Resolving]
  - Application site irritation [Recovering/Resolving]
  - Wrong technique in product usage process [None]
